FAERS Safety Report 10707403 (Version 1)
Quarter: 2015Q1

REPORT INFORMATION
  Report Type: Spontaneous
  Country: US (occurrence: None)
  Receive Date: 20150112
  Receipt Date: 20150112
  Transmission Date: 20150721
  Serious: Yes (Hospitalization)
  Sender: FDA-Public Use
  Company Number: None

PATIENT
  Age: 62 Year
  Sex: Male
  Weight: 83.01 kg

DRUGS (4)
  1. LEUCOVORIN [Suspect]
     Active Substance: LEUCOVORIN
  2. OXALIPLATIN. [Suspect]
     Active Substance: OXALIPLATIN
  3. ABRAXANE [Suspect]
     Active Substance: PACLITAXEL
  4. FLUOROURACIL. [Suspect]
     Active Substance: FLUOROURACIL

REACTIONS (2)
  - Liver abscess [None]
  - Deep vein thrombosis [None]

NARRATIVE: CASE EVENT DATE: 20150107
